FAERS Safety Report 11054934 (Version 1)
Quarter: 2015Q2

REPORT INFORMATION
  Report Type: Spontaneous
  Country: US (occurrence: None)
  Receive Date: 20150421
  Receipt Date: 20150421
  Transmission Date: 20150821
  Serious: Yes (Other)
  Sender: FDA-Public Use
  Company Number: None

PATIENT
  Sex: Female

DRUGS (1)
  1. ERYTHROMYCIN. [Suspect]
     Active Substance: ERYTHROMYCIN
     Dosage: 1 WHITE SMALL PILL EVERY 6 HRS. BY MOUTH
     Route: 048

REACTIONS (3)
  - Respiratory arrest [None]
  - Pulse absent [None]
  - Movement disorder [None]
